FAERS Safety Report 10346155 (Version 2)
Quarter: 2014Q3

REPORT INFORMATION
  Report Type: Report from Study
  Country: US (occurrence: US)
  Receive Date: 20140728
  Receipt Date: 20140728
  Transmission Date: 20150326
  Serious: Yes (Hospitalization)
  Sender: FDA-Public Use
  Company Number: US-ABBVIE-14K-163-1232983-00

PATIENT
  Age: 31 Year
  Sex: Female
  Weight: 65.38 kg

DRUGS (5)
  1. HUMIRA [Suspect]
     Active Substance: ADALIMUMAB
     Indication: CROHN^S DISEASE
     Dates: start: 20140313, end: 20140313
  2. HUMIRA [Suspect]
     Active Substance: ADALIMUMAB
     Dates: start: 20140327, end: 20140327
  3. HUMIRA [Suspect]
     Active Substance: ADALIMUMAB
     Dates: start: 20140410, end: 20140410
  4. FLINTSTONES [Concomitant]
     Indication: PRODUCT USED FOR UNKNOWN INDICATION
  5. HUMIRA [Suspect]
     Active Substance: ADALIMUMAB
     Dates: start: 20140423

REACTIONS (5)
  - Malaise [Unknown]
  - Mobility decreased [Unknown]
  - Vomiting [Unknown]
  - Nausea [Recovered/Resolved]
  - Crohn^s disease [Unknown]

NARRATIVE: CASE EVENT DATE: 201404
